FAERS Safety Report 4971451-1 (Version None)
Quarter: 2006Q2

REPORT INFORMATION
  Report Type: 
  Country: None (occurrence: None)
  Receive Date: 20060411
  Receipt Date: 20060411
  Transmission Date: 20061013
  Serious: Yes (Life-Threatening, Other)
  Sender: FDA-Public Use
  Company Number: None

PATIENT
  Age: 43 Year
  Sex: Male
  Weight: 99.7913 kg

DRUGS (1)
  1. EPZICOM [Suspect]
     Indication: HIV INFECTION
     Dosage: 1   DAILY   PO
     Route: 048
     Dates: start: 20060121, end: 20060407

REACTIONS (2)
  - HYPERSENSITIVITY [None]
  - LACTIC ACIDOSIS [None]
